FAERS Safety Report 15698630 (Version 1)
Quarter: 2018Q4

REPORT INFORMATION
  Report Type: Spontaneous
  Country: US (occurrence: US)
  Receive Date: 20181126
  Receipt Date: 20181126
  Transmission Date: 20190205
  Serious: Yes (Life-Threatening)
  Sender: FDA-Public Use
  Company Number: None

PATIENT
  Age: 56 Year
  Sex: Male
  Weight: 87.75 kg

DRUGS (8)
  1. LANATRAPOST [Concomitant]
  2. MIRAPEX [Concomitant]
     Active Substance: PRAMIPEXOLE DIHYDROCHLORIDE
  3. CLOZAPINE 100 MG TABLET [Suspect]
     Active Substance: CLOZAPINE
     Indication: SCHIZOAFFECTIVE DISORDER
     Dosage: ?          QUANTITY:4 DF DOSAGE FORM;?
     Route: 048
     Dates: start: 20181105
  4. OMEPREZOL [Concomitant]
  5. DULOXITITNE [Concomitant]
  6. BUSBERONE [Concomitant]
  7. TIMILOL [Concomitant]
  8. ATVORSTATIN [Concomitant]

REACTIONS (6)
  - Psychotic disorder [None]
  - Insomnia [None]
  - Palpitations [None]
  - Emotional disorder [None]
  - Product formulation issue [None]
  - Abnormal dreams [None]

NARRATIVE: CASE EVENT DATE: 20181116
